FAERS Safety Report 4469144-2 (Version None)
Quarter: 2004Q4

REPORT INFORMATION
  Report Type: 
  Country: None (occurrence: None)
  Receive Date: 20041005
  Receipt Date: 20040921
  Transmission Date: 20050328
  Serious: Yes (Other)
  Sender: FDA-Public Use
  Company Number: 2004_000063

PATIENT
  Age: 47 Year
  Sex: Female
  Weight: 73 kg

DRUGS (4)
  1. DEPOCYT [Suspect]
     Indication: MENINGITIS
     Dosage: 50 MG; EVERY OTHER WEEK; INTRATHECAL
     Route: 037
     Dates: start: 20040621, end: 20040720
  2. DEPOCYT [Suspect]
     Indication: METASTATIC NEOPLASM
     Dosage: 50 MG; EVERY OTHER WEEK; INTRATHECAL
     Route: 037
     Dates: start: 20040621, end: 20040720
  3. CAPECITABINE [Concomitant]
  4. DEXAMETHASONE [Concomitant]

REACTIONS (4)
  - ASTHENIA [None]
  - MENINGISM [None]
  - NEUROGENIC BLADDER [None]
  - SYNCOPE [None]
